FAERS Safety Report 6986230-3 (Version None)
Quarter: 2010Q3

REPORT INFORMATION
  Report Type: 
  Country: None (occurrence: None)
  Receive Date: 20100915
  Receipt Date: 20090611
  Transmission Date: 20110219
  Serious: No
  Sender: FDA-Public Use
  Company Number: US-WYE-H09741809

PATIENT
  Sex: Male
  Weight: 92.62 kg

DRUGS (8)
  1. PRISTIQ [Suspect]
     Indication: DEPRESSION
     Route: 048
     Dates: start: 20090606, end: 20090612
  2. KLONOPIN [Concomitant]
  3. METOPROLOL TARTRATE [Concomitant]
  4. GLIPIZIDE [Concomitant]
  5. LIPITOR [Concomitant]
  6. SERZONE [Suspect]
     Dosage: 400 MG TAPERED DOWN TO 100 MG DAILY
     Dates: end: 20090606
  7. SERZONE [Suspect]
     Dates: start: 20090613
  8. LUNESTA [Concomitant]

REACTIONS (5)
  - ABDOMINAL PAIN UPPER [None]
  - FLATULENCE [None]
  - HYPERHIDROSIS [None]
  - PRESYNCOPE [None]
  - TERMINAL INSOMNIA [None]
